FAERS Safety Report 19950156 (Version 5)
Quarter: 2022Q3

REPORT INFORMATION
  Report Type: Spontaneous
  Country: US (occurrence: US)
  Receive Date: 20211013
  Receipt Date: 20220919
  Transmission Date: 20221027
  Serious: Yes (Hospitalization, Other)
  Sender: FDA-Public Use
  Company Number: US-PFIZER INC-202101307714

PATIENT
  Age: 63 Year
  Sex: Female

DRUGS (4)
  1. XELJANZ XR [Suspect]
     Active Substance: TOFACITINIB CITRATE
     Indication: Rheumatoid arthritis
     Dosage: 11 MG, 1X/DAY
     Route: 048
     Dates: start: 2016
  2. XELJANZ XR [Suspect]
     Active Substance: TOFACITINIB CITRATE
     Indication: Psoriatic arthropathy
  3. XELJANZ XR [Suspect]
     Active Substance: TOFACITINIB CITRATE
     Indication: Psoriasis
  4. XELJANZ XR [Suspect]
     Active Substance: TOFACITINIB CITRATE
     Indication: Sjogren^s syndrome

REACTIONS (17)
  - Gastrointestinal perforation [Unknown]
  - Burns third degree [Recovered/Resolved]
  - Impaired healing [Not Recovered/Not Resolved]
  - Therapeutic product effect incomplete [Unknown]
  - Blood cholesterol increased [Unknown]
  - Blood glucose increased [Unknown]
  - Nerve injury [Unknown]
  - Hypoaesthesia [Unknown]
  - Aphonia [Unknown]
  - Tremor [Unknown]
  - Limb injury [Recovering/Resolving]
  - COVID-19 [Recovered/Resolved]
  - Alopecia [Unknown]
  - Arthropathy [Unknown]
  - Visual impairment [Unknown]
  - Cardiac disorder [Unknown]
  - Depression [Unknown]

NARRATIVE: CASE EVENT DATE: 20170101
